FAERS Safety Report 5810176-7 (Version None)
Quarter: 2008Q3

REPORT INFORMATION
  Report Type: 
  Country: None (occurrence: None)
  Receive Date: 20080715
  Receipt Date: 20070917
  Transmission Date: 20090109
  Serious: Yes (Hospitalization)
  Sender: FDA-Public Use
  Company Number: A0682436A

PATIENT
  Age: 48 Year
  Sex: Female

DRUGS (3)
  1. IMITREX [Suspect]
     Indication: MIGRAINE
     Dosage: 100MG VARIABLE DOSE
     Route: 048
     Dates: start: 20000101
  2. IMITREX [Suspect]
     Dosage: 6SPR VARIABLE DOSE
     Route: 045
     Dates: start: 20000101
  3. OXYMORPHONE [Suspect]
     Dosage: 120MG TWICE PER DAY
     Route: 048
     Dates: start: 20070101

REACTIONS (6)
  - DRUG INEFFECTIVE [None]
  - DYSPNOEA [None]
  - OEDEMA [None]
  - PARAESTHESIA [None]
  - TRANSIENT ISCHAEMIC ATTACK [None]
  - WEIGHT INCREASED [None]
